FAERS Safety Report 4726441-0 (Version None)
Quarter: 2005Q3

REPORT INFORMATION
  Report Type: 
  Country: None (occurrence: None)
  Receive Date: 20050726
  Receipt Date: 20050428
  Transmission Date: 20060218
  Serious: Yes (Hospitalization, Disabling)
  Sender: FDA-Public Use
  Company Number: REM_00112_2005

PATIENT
  Age: 37 Year
  Sex: Female
  Weight: 54.9 kg

DRUGS (13)
  1. REMODULIN [Suspect]
     Indication: PULMONARY HYPERTENSION
     Dosage: 57 NG/KG/MIN CONTINUOUS IV
     Route: 042
     Dates: start: 20050210
  2. TRACLEER [Concomitant]
  3. COUMADIN [Concomitant]
  4. LASIX [Concomitant]
  5. K-DUR 10 [Concomitant]
  6. KLONOPIN [Concomitant]
  7. OXYGEN [Concomitant]
  8. CELEXA [Concomitant]
  9. REGLAN [Concomitant]
  10. LORTAB [Concomitant]
  11. PHENERGAN 'AVENTS PHARMA^ [Concomitant]
  12. ULTRAM [Concomitant]
  13. NEURONTIN [Concomitant]

REACTIONS (6)
  - ADVERSE EVENT [None]
  - DIARRHOEA [None]
  - DYSPNOEA [None]
  - NAUSEA [None]
  - PAIN [None]
  - PAIN IN JAW [None]
